FAERS Safety Report 9845472 (Version 1)
Quarter: 2014Q1

REPORT INFORMATION
  Report Type: Spontaneous
  Country: US (occurrence: None)
  Receive Date: 20140123
  Receipt Date: 20140123
  Transmission Date: 20141002
  Serious: Yes (Other)
  Sender: FDA-Public Use
  Company Number: None

PATIENT
  Age: 34 Year
  Sex: Female
  Weight: 65.77 kg

DRUGS (2)
  1. SIBUTRAMINE [Suspect]
     Indication: WEIGHT CONTROL
     Dates: start: 20090801, end: 20100801
  2. SIBUTRAMINE [Suspect]
     Indication: ASTHENIA
     Dates: start: 20090801, end: 20100801

REACTIONS (5)
  - Muscle strain [None]
  - Ligament sprain [None]
  - Ligament sprain [None]
  - Product quality issue [None]
  - Product formulation issue [None]
